FAERS Safety Report 7116166-9 (Version None)
Quarter: 2010Q4

REPORT INFORMATION
  Report Type: 
  Country: None (occurrence: None)
  Receive Date: 20101122
  Receipt Date: 20101110
  Transmission Date: 20110411
  Serious: Yes (Hospitalization, Other)
  Sender: FDA-Public Use
  Company Number: PHHO2010JP17090

PATIENT
  Sex: Male
  Weight: 61 kg

DRUGS (5)
  1. RAD 666 [Suspect]
     Indication: PANCREATIC NEUROENDOCRINE TUMOUR
     Dosage: 10 MG DAILY
     Route: 048
     Dates: start: 20100325, end: 20101027
  2. PLACEBO [Suspect]
     Indication: PANCREATIC NEUROENDOCRINE TUMOUR
     Dosage: UNK
     Route: 048
     Dates: start: 20081024, end: 20100316
  3. SANDOSTATIN LAR [Concomitant]
     Indication: GASTRINOMA
  4. PROMAC [Concomitant]
     Indication: GASTRINOMA
  5. PARIET [Concomitant]
     Indication: GASTRINOMA

REACTIONS (10)
  - ABDOMINAL DISCOMFORT [None]
  - ABDOMINAL PAIN UPPER [None]
  - COUGH [None]
  - DECREASED APPETITE [None]
  - GASTRIC ULCER [None]
  - HYPOPHAGIA [None]
  - NASOPHARYNGITIS [None]
  - PYREXIA [None]
  - RHINORRHOEA [None]
  - VOMITING [None]
